FAERS Safety Report 7032906-1 (Version None)
Quarter: 2010Q4

REPORT INFORMATION
  Report Type: 
  Country: None (occurrence: None)
  Receive Date: 20101007
  Receipt Date: 20100929
  Transmission Date: 20110411
  Serious: Yes (Other)
  Sender: FDA-Public Use
  Company Number: US-JNJFOC-20101000575

PATIENT
  Sex: Female

DRUGS (1)
  1. DOXIL [Suspect]
     Indication: PRODUCT USED FOR UNKNOWN INDICATION
     Route: 042

REACTIONS (4)
  - DYSPNOEA [None]
  - ERYTHEMA [None]
  - NAUSEA [None]
  - PERIORBITAL OEDEMA [None]
